FAERS Safety Report 13684075 (Version 1)
Quarter: 2017Q2

REPORT INFORMATION
  Report Type: Spontaneous
  Country: US (occurrence: US)
  Receive Date: 20170623
  Receipt Date: 20170623
  Transmission Date: 20170830
  Serious: No
  Sender: FDA-Public Use
  Company Number: US-ASTELLAS-2017US007437

PATIENT
  Age: 8 Decade
  Sex: Female

DRUGS (2)
  1. GARCINIA CAMBOGIA /01446801/ [Interacting]
     Active Substance: HERBALS
     Indication: HYPERTONIC BLADDER
     Dosage: UNK UNK, UNKNOWN FREQ.
     Route: 065
  2. VESICARE [Suspect]
     Active Substance: SOLIFENACIN SUCCINATE
     Indication: HYPERTONIC BLADDER
     Route: 065

REACTIONS (3)
  - Drug interaction [Unknown]
  - Hypertonic bladder [Unknown]
  - Treatment noncompliance [Unknown]
